FAERS Safety Report 19808350 (Version 1)
Quarter: 2021Q3

REPORT INFORMATION
  Report Type: Spontaneous
  Country: US (occurrence: US)
  Receive Date: 20210909
  Receipt Date: 20210909
  Transmission Date: 20211014
  Serious: Yes (Hospitalization)
  Sender: FDA-Public Use
  Company Number: US-BRISTOL-MYERS SQUIBB COMPANY-BMS-2021-090523

PATIENT
  Age: 53 Year
  Sex: Male

DRUGS (6)
  1. ORENCIA [Suspect]
     Active Substance: ABATACEPT
     Indication: EMBOLISM ARTERIAL
  2. ORENCIA [Suspect]
     Active Substance: ABATACEPT
     Indication: EMBOLISM ARTERIAL
  3. ORENCIA [Suspect]
     Active Substance: ABATACEPT
     Indication: ACUTE MYELOID LEUKAEMIA
     Dosage: 1 SYRINGE ONCE WEEKLY
     Route: 058
     Dates: start: 20210809
  4. ORENCIA [Suspect]
     Active Substance: ABATACEPT
     Indication: GRAFT VERSUS HOST DISEASE
  5. ORENCIA [Suspect]
     Active Substance: ABATACEPT
     Indication: GRAFT VERSUS HOST DISEASE
  6. ORENCIA [Suspect]
     Active Substance: ABATACEPT
     Indication: ACUTE MYELOID LEUKAEMIA
     Dosage: 1 SYRINGE ONCE WEEKLY
     Route: 058
     Dates: start: 20210809

REACTIONS (2)
  - Hospitalisation [Unknown]
  - Intentional product use issue [Unknown]
